FAERS Safety Report 8339341 (Version 9)
Quarter: 2023Q1

REPORT INFORMATION
  Report Type: Spontaneous
  Country: US (occurrence: US)
  Receive Date: 20120117
  Receipt Date: 20230208
  Transmission Date: 20230418
  Serious: Yes (Hospitalization, Other)
  Sender: FDA-Public Use
  Company Number: US-PFIZER INC-2012009647

PATIENT
  Age: 71 Year
  Sex: Female
  Weight: 90.717 kg

DRUGS (5)
  1. HALCION [Suspect]
     Active Substance: TRIAZOLAM
     Indication: Insomnia
     Dosage: 0.25 MG, ONCE DAILY
     Route: 048
     Dates: start: 1980
  2. HALCION [Suspect]
     Active Substance: TRIAZOLAM
     Dosage: 0.25 MG, ONCE PER DAY
     Route: 048
  3. HALCION [Suspect]
     Active Substance: TRIAZOLAM
     Dosage: 0.5 MG, DAILY
     Route: 048
  4. HALCION [Suspect]
     Active Substance: TRIAZOLAM
     Dosage: 2.5 MG, AT 2 O^CLOCK AND AT 3 O^CLOCK
     Route: 048
  5. TRAMADOL [Concomitant]
     Active Substance: TRAMADOL
     Indication: Pain
     Dosage: UNK

REACTIONS (21)
  - Drug ineffective [Unknown]
  - Intentional product misuse [Unknown]
  - Intentional overdose [Unknown]
  - Sleep apnoea syndrome [Unknown]
  - Arthritis [Unknown]
  - Drug dependence [Not Recovered/Not Resolved]
  - Macular degeneration [Not Recovered/Not Resolved]
  - Off label use [Unknown]
  - Product use issue [Unknown]
  - Visual impairment [Unknown]
  - Impaired driving ability [Unknown]
  - Hypertension [Unknown]
  - Therapeutic product effect incomplete [Not Recovered/Not Resolved]
  - Arthropathy [Not Recovered/Not Resolved]
  - Cardiac disorder [Unknown]
  - Feeling abnormal [Unknown]
  - Fall [Recovering/Resolving]
  - Headache [Not Recovered/Not Resolved]
  - Insomnia [Unknown]
  - Somnolence [Unknown]
  - Weight increased [Unknown]

NARRATIVE: CASE EVENT DATE: 20060101
